FAERS Safety Report 11135560 (Version 1)
Quarter: 2015Q2

REPORT INFORMATION
  Report Type: Spontaneous
  Country: US (occurrence: None)
  Receive Date: 20150522
  Receipt Date: 20150522
  Transmission Date: 20150821
  Serious: Yes (Disabling)
  Sender: FDA-Public Use
  Company Number: None

PATIENT
  Sex: Female
  Weight: 90 kg

DRUGS (2)
  1. METROGEL [Suspect]
     Active Substance: METRONIDAZOLE
     Dosage: SMALL, PEA-SIZED AMOUNT DAILY AT NIGHT
     Dates: start: 1995
  2. METROGEL [Suspect]
     Active Substance: METRONIDAZOLE
     Indication: ROSACEA
     Dosage: SMALL, PEA-SIZED AMOUNT DAILY AT NIGHT
     Dates: start: 1995

REACTIONS (5)
  - Eye disorder [None]
  - Dacryostenosis acquired [None]
  - Neuropathy peripheral [None]
  - Foreign body sensation in eyes [None]
  - Rosacea [None]

NARRATIVE: CASE EVENT DATE: 1999
